FAERS Safety Report 21972783 (Version 2)
Quarter: 2024Q3

REPORT INFORMATION
  Report Type: Spontaneous
  Country: US (occurrence: US)
  Receive Date: 20230209
  Receipt Date: 20240820
  Transmission Date: 20241017
  Serious: No
  Sender: LUPIN
  Company Number: US-LUPIN PHARMACEUTICALS INC.-2023-00453

PATIENT

DRUGS (1)
  1. TESTOSTERONE GEL 1.62% [Suspect]
     Active Substance: TESTOSTERONE
     Indication: Hormone replacement therapy
     Dosage: UNK UNK, TID
     Route: 061
     Dates: start: 201612

REACTIONS (6)
  - Libido decreased [Unknown]
  - Fatigue [Unknown]
  - Lethargy [Unknown]
  - Depression [Unknown]
  - Blood testosterone decreased [Unknown]
  - Product substitution issue [Unknown]
